FAERS Safety Report 16944881 (Version 1)
Quarter: 2019Q4

REPORT INFORMATION
  Report Type: Spontaneous
  Country: US (occurrence: US)
  Receive Date: 20191022
  Receipt Date: 20191022
  Transmission Date: 20200122
  Serious: Yes (Other)
  Sender: FDA-Public Use
  Company Number: US-MYLANLABS-2019M1096918

PATIENT
  Age: 63 Year
  Sex: Female
  Weight: 113 kg

DRUGS (1)
  1. WIXELA INHUB [Suspect]
     Active Substance: FLUTICASONE PROPIONATE\SALMETEROL XINAFOATE
     Indication: ASTHMA
     Dosage: UNK UNK, BID TWICE A DAY
     Route: 048
     Dates: start: 20190903

REACTIONS (4)
  - Choking [Not Recovered/Not Resolved]
  - Retching [Recovering/Resolving]
  - Device defective [Unknown]
  - Cough [Recovering/Resolving]

NARRATIVE: CASE EVENT DATE: 20191011
